FAERS Safety Report 10145936 (Version 1)
Quarter: 2014Q2

REPORT INFORMATION
  Report Type: Spontaneous
  Country: US (occurrence: US)
  Receive Date: 20140501
  Receipt Date: 20140501
  Transmission Date: 20141212
  Serious: No
  Sender: FDA-Public Use
  Company Number: US-ABBVIE-14P-163-1197184-00

PATIENT
  Age: 16 Year
  Sex: Male
  Weight: 63 kg

DRUGS (1)
  1. CREON [Suspect]
     Indication: CYSTIC FIBROSIS
     Dosage: 6 CAPSULES (24000 UNITS/CAP) PER MEAL; 5 CAPSULES WITH EACH SNACK
     Dates: start: 2010, end: 201312

REACTIONS (1)
  - Pruritus [Recovered/Resolved]
